FAERS Safety Report 8027017-2 (Version None)
Quarter: 2012Q1

REPORT INFORMATION
  Report Type: 
  Country: None (occurrence: None)
  Receive Date: 20120106
  Receipt Date: 20120103
  Transmission Date: 20120608
  Serious: Yes (Other)
  Sender: FDA-Public Use
  Company Number: US-PFIZER INC-2012001564

PATIENT
  Sex: Female
  Weight: 74.83 kg

DRUGS (9)
  1. NEURONTIN [Concomitant]
     Dosage: UNK
  2. DARIFENACIN [Concomitant]
     Dosage: 7.5 MG, UNK
  3. FENTANYL [Concomitant]
     Dosage: 100 MG, UNK
     Route: 062
  4. PROMETHAZINE [Concomitant]
     Dosage: 25 MG, UNK
  5. PANCRELIPASE [Concomitant]
     Dosage: 4000 IU, 1X/DAY
  6. TAPENTADOL [Concomitant]
     Dosage: UNK
  7. LYRICA [Suspect]
     Indication: FIBROMYALGIA
     Dosage: 75 MG, 3X/DAY
     Route: 048
     Dates: start: 20090101, end: 20111201
  8. AMBIEN [Concomitant]
     Dosage: UNK
  9. LIPITOR [Concomitant]
     Dosage: UNK

REACTIONS (5)
  - COMPLEX REGIONAL PAIN SYNDROME [None]
  - NAUSEA [None]
  - ARTHRITIS [None]
  - MENISCUS LESION [None]
  - RASH [None]
